FAERS Safety Report 5049411-4 (Version None)
Quarter: 2006Q3

REPORT INFORMATION
  Report Type: 
  Country: None (occurrence: None)
  Receive Date: 20060711
  Receipt Date: 20060711
  Transmission Date: 20061208
  Serious: Yes (Life-Threatening, Hospitalization, Other)
  Sender: FDA-Public Use
  Company Number: None

PATIENT
  Age: 81 Year
  Sex: Male
  Weight: 83.9154 kg

DRUGS (1)
  1. NATRECOR [Suspect]
     Indication: PROPHYLAXIS
     Dosage: INTO KIDNEY    IV BOLUS
     Route: 040
     Dates: start: 20051117, end: 20051117

REACTIONS (1)
  - ADVERSE DRUG REACTION [None]
